FAERS Safety Report 4404681-8 (Version None)
Quarter: 2004Q3

REPORT INFORMATION
  Report Type: 
  Country: None (occurrence: None)
  Receive Date: 20040722
  Receipt Date: 20040719
  Transmission Date: 20050211
  Serious: Yes (Hospitalization)
  Sender: FDA-Public Use
  Company Number: FI-MERCK-0407FIN00046

PATIENT
  Age: 70 Year
  Sex: Female

DRUGS (4)
  1. ACEBUTOLOL [Concomitant]
     Route: 048
  2. ATORVASTATIN CALCIUM [Concomitant]
     Route: 048
  3. FELODIPINE [Concomitant]
     Route: 048
  4. HYZAAR [Suspect]
     Indication: HYPERTENSION
     Route: 048
     Dates: start: 20030101, end: 20040426

REACTIONS (1)
  - HEPATITIS TOXIC [None]
